FAERS Safety Report 10221715 (Version 1)
Quarter: 2014Q2

REPORT INFORMATION
  Report Type: Report from Study
  Country: AU (occurrence: AU)
  Receive Date: 20140606
  Receipt Date: 20140606
  Transmission Date: 20141212
  Serious: Yes (Life-Threatening, Hospitalization, Other)
  Sender: FDA-Public Use
  Company Number: AU-ASTRAZENECA-2014SE38876

PATIENT
  Age: 0 Day
  Sex: Female
  Weight: 3.2 kg

DRUGS (3)
  1. SEROQUEL XR [Suspect]
     Indication: PSYCHOTIC DISORDER
     Dosage: 25-250 MG/DAY STARTED AT 16/40 WEEKS
     Route: 064
  2. SWISSE PREGNANCY MULTIVITAMINS [Concomitant]
     Indication: VITAMIN SUPPLEMENTATION
     Dosage: STARTED AT FIRST TRIMESTER, ONGOING DURING ALL PREGNANCY
     Route: 064
  3. CALTRATE PLUS [Concomitant]
     Indication: MINERAL SUPPLEMENTATION
     Dosage: INITIATED AT 1ST TRIMESTER AND STOPPED AT FIRST TRIMESTER
     Route: 064

REACTIONS (2)
  - Respiratory distress [Recovered/Resolved]
  - Drug withdrawal syndrome neonatal [Recovered/Resolved]
